FAERS Safety Report 17353949 (Version 1)
Quarter: 2020Q1

REPORT INFORMATION
  Report Type: Spontaneous
  Country: SE (occurrence: SE)
  Receive Date: 20200131
  Receipt Date: 20200131
  Transmission Date: 20200409
  Serious: Yes (Other)
  Sender: FDA-Public Use
  Company Number: SE-TEVA-2020-SE-1170974

PATIENT
  Age: 37 Year
  Sex: Female

DRUGS (1)
  1. EMTRICITABINE TENOFOVIR DISOPROXIL TEVA [Suspect]
     Active Substance: EMTRICITABINE\TENOFOVIR DISOPROXIL
     Dosage: 1X1
     Route: 048
     Dates: start: 20200105

REACTIONS (7)
  - Product substitution issue [Unknown]
  - Abortion spontaneous [Unknown]
  - Chest pain [Recovered/Resolved]
  - Incorrect product administration duration [Unknown]
  - Vaginal haemorrhage [Recovered/Resolved]
  - Hyperhidrosis [Recovered/Resolved]
  - Maternal exposure during pregnancy [Unknown]

NARRATIVE: CASE EVENT DATE: 20200105
